FAERS Safety Report 12106105 (Version 2)
Quarter: 2016Q2

REPORT INFORMATION
  Report Type: Spontaneous
  Country: US (occurrence: US)
  Receive Date: 20160223
  Receipt Date: 20160527
  Transmission Date: 20160815
  Serious: Yes (Other)
  Sender: FDA-Public Use
  Company Number: ALCN2016US001423

PATIENT
  Age: 62 Year
  Sex: Male

DRUGS (1)
  1. BSS [Suspect]
     Active Substance: CALCIUM CHLORIDE\MAGNESIUM CHLORIDE\POTASSIUM CHLORIDE\SODIUM ACETATE\SODIUM CHLORIDE\SODIUM CITRATE
     Indication: CATARACT OPERATION
     Dosage: UNK
     Route: 047
     Dates: start: 20160126, end: 20160126

REACTIONS (4)
  - Conjunctivitis [Recovering/Resolving]
  - Toxic anterior segment syndrome [Recovering/Resolving]
  - Anterior chamber cell [Recovering/Resolving]
  - Anterior chamber flare [Recovering/Resolving]

NARRATIVE: CASE EVENT DATE: 20160127
